FAERS Safety Report 11206340 (Version 1)
Quarter: 2015Q2

REPORT INFORMATION
  Report Type: Spontaneous
  Country: FR (occurrence: FR)
  Receive Date: 20150622
  Receipt Date: 20150622
  Transmission Date: 20150821
  Serious: Yes (Hospitalization)
  Sender: FDA-Public Use
  Company Number: FR-MYLANLABS-2015M1020112

PATIENT

DRUGS (5)
  1. AMIODARONE [Suspect]
     Active Substance: AMIODARONE
     Indication: SUPRAVENTRICULAR TACHYCARDIA
     Dosage: 500 MG/ME2 FOR FOUR DAYS
     Route: 048
  2. INEXIUM                            /01479302/ [Interacting]
     Active Substance: ESOMEPRAZOLE MAGNESIUM
     Indication: GASTROOESOPHAGEAL REFLUX DISEASE
     Route: 065
  3. AMIODARONE [Suspect]
     Active Substance: AMIODARONE
     Dosage: THEN 250 MG/ME2 IN A SINGLE DAILY DOSE
     Route: 048
  4. ADENOSINE DIPHOSPHATE [Concomitant]
     Indication: SUPRAVENTRICULAR TACHYCARDIA
     Route: 065
  5. GAVISCON [Interacting]
     Active Substance: ALUMINUM HYDROXIDE\MAGNESIUM CARBONATE
     Indication: GASTROOESOPHAGEAL REFLUX DISEASE
     Dosage: 1ML AFTER FEED
     Route: 065

REACTIONS (3)
  - Supraventricular tachycardia [Recovered/Resolved]
  - Drug interaction [Recovered/Resolved]
  - Treatment failure [Recovered/Resolved]
